FAERS Safety Report 10027371 (Version 2)
Quarter: 2014Q1

REPORT INFORMATION
  Report Type: Spontaneous
  Country: BR (occurrence: BR)
  Receive Date: 20140321
  Receipt Date: 20140327
  Transmission Date: 20141002
  Serious: Yes (Other)
  Sender: FDA-Public Use
  Company Number: PHHY2014BR030840

PATIENT
  Age: 11 Year
  Sex: Female
  Weight: 33 kg

DRUGS (3)
  1. LECTRUM [Suspect]
     Indication: PUBERTY
     Dosage: 3.75 MG, UNK
     Dates: start: 20140221
  2. DEPURA [Concomitant]
     Indication: HYPOVITAMINOSIS
     Dosage: UNK QD
  3. RITALIN [Concomitant]
     Indication: ATTENTION DEFICIT/HYPERACTIVITY DISORDER
     Dosage: 10 MG, QD

REACTIONS (3)
  - Crying [Not Recovered/Not Resolved]
  - Headache [Recovered/Resolved]
  - Pain [Not Recovered/Not Resolved]
